FAERS Safety Report 4941047-6 (Version None)
Quarter: 2006Q1

REPORT INFORMATION
  Report Type: 
  Country: None (occurrence: None)
  Receive Date: 20060313
  Receipt Date: 20060210
  Transmission Date: 20060701
  Serious: Yes (Hospitalization)
  Sender: FDA-Public Use
  Company Number: PHHO2006JP02721

PATIENT
  Age: 71 Year
  Sex: Male

DRUGS (8)
  1. DIOVAN [Suspect]
     Indication: HYPERTENSION
     Dosage: 80 MG, QD
     Route: 048
     Dates: start: 20030110, end: 20030505
  2. DIOVAN [Suspect]
     Dosage: 80 MG, BID
     Route: 048
     Dates: start: 20030506
  3. MAINTATE [Concomitant]
     Indication: VENTRICULAR EXTRASYSTOLES
     Dosage: 2.5 MG, UNK
     Route: 048
     Dates: start: 20020927
  4. MAINTATE [Concomitant]
     Dosage: 5 MG, UNK
     Route: 048
  5. MAINTATE [Concomitant]
     Dosage: 2.5 MG, UNK
     Route: 048
  6. MAINTATE [Concomitant]
     Dosage: 5 MG, UNK
     Route: 048
  7. CARDENALIN [Concomitant]
     Indication: HYPERTENSION
     Dosage: 2 MG, UNK
     Route: 048
     Dates: start: 20040220
  8. AMLODIN [Concomitant]
     Indication: HYPERTENSION
     Dosage: 5 MG, UNK
     Route: 048
     Dates: start: 20041101, end: 20041218

REACTIONS (2)
  - GASTRIC CANCER [None]
  - INTESTINAL RESECTION [None]
